FAERS Safety Report 7272440-7 (Version None)
Quarter: 2011Q1

REPORT INFORMATION
  Report Type: 
  Country: None (occurrence: None)
  Receive Date: 20110131
  Receipt Date: 20110131
  Transmission Date: 20110831
  Serious: Yes (Hospitalization)
  Sender: FDA-Public Use
  Company Number: None

PATIENT
  Age: 81 Year
  Sex: Male
  Weight: 95.25 kg

DRUGS (1)
  1. PHYTONADIONE [Suspect]
     Indication: ATRIAL FIBRILLATION
     Dosage: 1.4 MG PM PO
     Route: 048
     Dates: start: 20000101

REACTIONS (3)
  - OCCULT BLOOD POSITIVE [None]
  - INTERNATIONAL NORMALISED RATIO INCREASED [None]
  - GASTROINTESTINAL HAEMORRHAGE [None]
